FAERS Safety Report 9598690 (Version 2)
Quarter: 2013Q4

REPORT INFORMATION
  Report Type: Spontaneous
  Country: US (occurrence: US)
  Receive Date: 20131004
  Receipt Date: 20131004
  Transmission Date: 20140711
  Serious: Yes (Other)
  Sender: FDA-Public Use
  Company Number: US-AMGEN-USASP2013022631

PATIENT
  Age: 58 Year
  Sex: Female

DRUGS (6)
  1. ENBREL [Suspect]
     Indication: RHEUMATOID ARTHRITIS
     Dosage: 50 MG, QWK
     Route: 058
     Dates: start: 201211, end: 20130128
  2. GLUCOSAMIN                         /00943602/ [Concomitant]
     Dosage: UNK
  3. MVI [Concomitant]
     Dosage: UNK
  4. CALCIUM +D                         /07511201/ [Concomitant]
     Dosage: UNK
  5. SAM-E [Concomitant]
     Dosage: UNK
  6. FOLBIC [Concomitant]
     Dosage: UNK

REACTIONS (1)
  - Uveitis [Unknown]
